FAERS Safety Report 19427687 (Version 1)
Quarter: 2021Q2

REPORT INFORMATION
  Report Type: Spontaneous
  Country: US (occurrence: US)
  Receive Date: 20210616
  Receipt Date: 20210616
  Transmission Date: 20210717
  Serious: No
  Sender: FDA-Public Use
  Company Number: US-ROCHE-2767431

PATIENT
  Age: 64 Year
  Sex: Female

DRUGS (2)
  1. ACTEMRA [Suspect]
     Active Substance: TOCILIZUMAB
     Dosage: 400MG/20ML SINGLE DOSE VIAL
     Route: 042
     Dates: start: 202011, end: 202103
  2. ACTEMRA [Suspect]
     Active Substance: TOCILIZUMAB
     Indication: RHEUMATOID ARTHRITIS
     Dosage: SINGLE DOSE VIAL
     Route: 042
     Dates: start: 202101

REACTIONS (3)
  - Dermatitis psoriasiform [Unknown]
  - Blood blister [Unknown]
  - Skin ulcer [Unknown]

NARRATIVE: CASE EVENT DATE: 20210208
